FAERS Safety Report 10770810 (Version 1)
Quarter: 2015Q1

REPORT INFORMATION
  Report Type: Spontaneous
  Country: US (occurrence: None)
  Receive Date: 20150206
  Receipt Date: 20150206
  Transmission Date: 20150721
  Serious: No
  Sender: FDA-Public Use
  Company Number: HYP201406-000038

PATIENT
  Age: 35 Year
  Sex: Female
  Weight: 63 kg

DRUGS (4)
  1. RAVICTI [Suspect]
     Active Substance: GLYCEROL PHENYLBUTYRATE
     Indication: AMINO ACID METABOLISM DISORDER
     Dates: start: 20140613, end: 20140620
  2. MIRALAX (MACROGOL) [Concomitant]
  3. VITAMIN K (PHYTOMENADIONE) [Concomitant]
  4. CITRULLINE (CITRULLINE) [Concomitant]

REACTIONS (4)
  - Hypoaesthesia [None]
  - Fatigue [None]
  - Paraesthesia [None]
  - Headache [None]

NARRATIVE: CASE EVENT DATE: 20140613
